FAERS Safety Report 10646385 (Version 1)
Quarter: 2014Q4

REPORT INFORMATION
  Report Type: Spontaneous
  Country: US (occurrence: None)
  Receive Date: 20141203
  Receipt Date: 20141203
  Transmission Date: 20150529
  Serious: No
  Sender: FDA-Public Use
  Company Number: 1405USA003393

PATIENT
  Sex: Female

DRUGS (2)
  1. GRASTEK [Suspect]
     Active Substance: PHLEUM PRATENSE POLLEN
     Indication: SEASONAL ALLERGY
     Dosage: 0.25DF, QD; 1/4 OF TABLET AS A TRIAL DOSE, SUBLINGUAL
     Route: 060
  2. ZYRTEC [Concomitant]
     Active Substance: CETIRIZINE HYDROCHLORIDE

REACTIONS (5)
  - Pruritus [None]
  - Mouth swelling [None]
  - Urticaria [None]
  - Paraesthesia oral [None]
  - Discomfort [None]
